FAERS Safety Report 21550969 (Version 1)
Quarter: 2022Q4

REPORT INFORMATION
  Report Type: Spontaneous
  Country: US (occurrence: US)
  Receive Date: 20221103
  Receipt Date: 20221103
  Transmission Date: 20230113
  Serious: No
  Sender: FDA-Public Use
  Company Number: US-SA-SAC20221101000096

PATIENT
  Age: 50 Year
  Sex: Female

DRUGS (1)
  1. KEVZARA [Suspect]
     Active Substance: SARILUMAB
     Dosage: 200 MG
     Route: 058
     Dates: start: 202209, end: 202210

REACTIONS (7)
  - Rash [Unknown]
  - Blister [Unknown]
  - Pruritus [Unknown]
  - Erythema [Unknown]
  - Feeling hot [Unknown]
  - Pyrexia [Unknown]
  - Drug hypersensitivity [Unknown]
